FAERS Safety Report 6436085-0 (Version None)
Quarter: 2009Q4

REPORT INFORMATION
  Report Type: 
  Country: None (occurrence: None)
  Receive Date: 20091111
  Receipt Date: 20091106
  Transmission Date: 20100525
  Serious: Yes (Other)
  Sender: FDA-Public Use
  Company Number: US-TEVA-214690USA

PATIENT
  Sex: Male

DRUGS (3)
  1. WARFARIN SODIUM TABLET 1MG, 2MG, 2.5MG, 3MG, 4MG, 5MG,6MG, 7.5MG, 10MG [Suspect]
  2. CLOPIDOGREL [Suspect]
     Route: 048
     Dates: start: 20060101
  3. ACETYLSALICYLIC ACID [Suspect]

REACTIONS (2)
  - BLADDER NEOPLASM [None]
  - HAEMATURIA [None]
